FAERS Safety Report 7836555-4 (Version None)
Quarter: 2011Q4

REPORT INFORMATION
  Report Type: 
  Country: None (occurrence: None)
  Receive Date: 20111024
  Receipt Date: 20111019
  Transmission Date: 20120403
  Serious: Yes (Life-Threatening)
  Sender: FDA-Public Use
  Company Number: JP-ASTRAZENECA-2011SE63136

PATIENT
  Age: 69 Year
  Sex: Male
  Weight: 60 kg

DRUGS (9)
  1. DIPRIVAN [Suspect]
     Indication: INDUCTION OF ANAESTHESIA
     Route: 042
  2. REMIFENTANIL HYDROCHLORIDE [Concomitant]
     Indication: INDUCTION OF ANAESTHESIA
     Dosage: 0.3 MICRO-G/KG/MIN
     Route: 065
  3. REMIFENTANIL HYDROCHLORIDE [Concomitant]
     Dosage: 0.2 MICRO-G/KG/MIN
     Route: 065
  4. ROCURONIUM BROMIDE [Concomitant]
     Route: 065
  5. DIPRIVAN [Suspect]
     Indication: MAINTENANCE OF ANAESTHESIA
     Route: 042
  6. DIPRIVAN [Suspect]
     Dosage: 2.5 MICRO-G/ML
     Route: 042
  7. REMIFENTANIL HYDROCHLORIDE [Concomitant]
     Dosage: 0.2 MICRO-G/KG/MIN
     Route: 065
  8. DIPRIVAN [Suspect]
     Dosage: 2.5 MICRO-G/ML
     Route: 042
  9. REMIFENTANIL HYDROCHLORIDE [Concomitant]
     Indication: MAINTENANCE OF ANAESTHESIA
     Dosage: 0.3 MICRO-G/KG/MIN
     Route: 065

REACTIONS (1)
  - ARTERIOSPASM CORONARY [None]
